FAERS Safety Report 14121979 (Version 3)
Quarter: 2018Q1

REPORT INFORMATION
  Report Type: Spontaneous
  Country: BE (occurrence: BE)
  Receive Date: 20171024
  Receipt Date: 20180115
  Transmission Date: 20180508
  Serious: Yes (Hospitalization, Other)
  Sender: FDA-Public Use
  Company Number: BE-BAYER-2017-117954

PATIENT
  Age: 30 Year
  Sex: Female
  Weight: 57 kg

DRUGS (2)
  1. MIRENA [Suspect]
     Active Substance: LEVONORGESTREL
     Dosage: 20 MCG/24HR, CONT
     Route: 015
     Dates: start: 20170427, end: 20170815
  2. MIRENA [Suspect]
     Active Substance: LEVONORGESTREL

REACTIONS (11)
  - Pregnancy with contraceptive device [None]
  - Abdominal pain [None]
  - C-reactive protein increased [None]
  - Drug ineffective [None]
  - Haemophilus sepsis [None]
  - Preterm premature rupture of membranes [None]
  - Device expulsion [None]
  - Pyrexia [None]
  - White blood cell count increased [None]
  - Amniotic cavity infection [None]
  - Abortion spontaneous [None]

NARRATIVE: CASE EVENT DATE: 20170516
